FAERS Safety Report 17263293 (Version 1)
Quarter: 2020Q1

REPORT INFORMATION
  Report Type: Spontaneous
  Country: US (occurrence: US)
  Receive Date: 20200113
  Receipt Date: 20200113
  Transmission Date: 20200409
  Serious: No
  Sender: FDA-Public Use
  Company Number: US-SIGMAPHARM LABORATORIES, LLC-2019SIG00012

PATIENT
  Sex: Female

DRUGS (3)
  1. LIOTHYRONINE SODIUM. [Suspect]
     Active Substance: LIOTHYRONINE SODIUM
     Indication: HYPOTHYROIDISM
     Dosage: UNK
  2. LIOTHYRONINE SODIUM. [Suspect]
     Active Substance: LIOTHYRONINE SODIUM
     Dosage: 75 MCG
  3. KEFLEX [Suspect]
     Active Substance: CEPHALEXIN
     Indication: ARTHROPOD BITE

REACTIONS (12)
  - Venom poisoning [Unknown]
  - Malaise [Recovered/Resolved]
  - Drug ineffective [Unknown]
  - Muscle spasms [Unknown]
  - Myalgia [Recovered/Resolved]
  - Arthropod bite [Recovered/Resolved]
  - Pain [Unknown]
  - Hypothyroidism [Unknown]
  - Influenza like illness [Recovered/Resolved]
  - Reaction to excipient [Recovered/Resolved]
  - Dizziness [Unknown]
  - Drug interaction [Unknown]
